FAERS Safety Report 20754851 (Version 2)
Quarter: 2022Q2

REPORT INFORMATION
  Report Type: Spontaneous
  Country: US (occurrence: US)
  Receive Date: 20220427
  Receipt Date: 20220526
  Transmission Date: 20220720
  Serious: No
  Sender: FDA-Public Use
  Company Number: US-JNJFOC-20220444293

PATIENT
  Age: 66 Year
  Sex: Female

DRUGS (3)
  1. BALVERSA [Suspect]
     Active Substance: ERDAFITINIB
     Indication: Product used for unknown indication
     Dosage: STOPPED FOR 1 MONTH?4 MG A DAY
     Route: 048
     Dates: start: 20211012
  2. ANASTROZOLE [Concomitant]
     Active Substance: ANASTROZOLE
     Indication: Breast cancer
     Route: 065
     Dates: start: 201905
  3. GABAPENTIN [Concomitant]
     Active Substance: GABAPENTIN
     Indication: Prophylaxis
     Route: 065
     Dates: start: 201906

REACTIONS (3)
  - Vision blurred [Recovering/Resolving]
  - Blister [Recovered/Resolved]
  - Nail disorder [Unknown]
